FAERS Safety Report 21057711 (Version 1)
Quarter: 2022Q3

REPORT INFORMATION
  Report Type: Spontaneous
  Country: NO (occurrence: NO)
  Receive Date: 20220708
  Receipt Date: 20220708
  Transmission Date: 20221027
  Serious: Yes (Hospitalization)
  Sender: FDA-Public Use
  Company Number: None

PATIENT
  Age: 63 Year
  Sex: Female

DRUGS (1)
  1. ZOLEDRONIC ACID [Suspect]
     Active Substance: ZOLEDRONIC ACID
     Indication: Osteoporosis
     Dosage: 5 MILLIGRAM, ONCE (USE AS INSTRUCTED BY DOCTOR, M05BA08 - ZOLEDRONSYRE)
     Route: 065
     Dates: start: 20220504, end: 20220618

REACTIONS (1)
  - Periostitis [Recovering/Resolving]

NARRATIVE: CASE EVENT DATE: 20220501
